FAERS Safety Report 10585251 (Version 2)
Quarter: 2014Q4

REPORT INFORMATION
  Report Type: Spontaneous
  Country: CO (occurrence: None)
  Receive Date: 20141113
  Receipt Date: 20141126
  Transmission Date: 20150529
  Serious: Yes (Other)
  Sender: FDA-Public Use
  Company Number: 2617238

PATIENT
  Age: 33 Year
  Sex: Female
  Weight: 50 kg

DRUGS (2)
  1. NORADRENALINE TARTRATE [Suspect]
     Active Substance: NOREPINEPHRINE BITARTRATE
     Indication: HAEMODYNAMIC INSTABILITY
     Dosage: 0.5 MCG/KG/MIN
     Dates: start: 20140903, end: 20140908
  2. VASOPRESSIN. [Suspect]
     Active Substance: VASOPRESSIN
     Indication: HAEMODYNAMIC INSTABILITY
     Dates: start: 2014

REACTIONS (6)
  - Drug ineffective [None]
  - Extremity necrosis [None]
  - Incorrect dose administered [None]
  - Wrong technique in drug usage process [None]
  - Cyanosis [None]
  - Drug administration error [None]

NARRATIVE: CASE EVENT DATE: 2014
